FAERS Safety Report 20534655 (Version 3)
Quarter: 2022Q2

REPORT INFORMATION
  Report Type: Spontaneous
  Country: IT (occurrence: IT)
  Receive Date: 20220302
  Receipt Date: 20220429
  Transmission Date: 20220721
  Serious: Yes (Other)
  Sender: FDA-Public Use
  Company Number: IT-SA-SAC20220228000951

PATIENT
  Sex: Male

DRUGS (10)
  1. DUPILUMAB [Suspect]
     Active Substance: DUPILUMAB
     Indication: Dermatitis atopic
     Dosage: UNK
     Route: 065
     Dates: start: 2021
  2. DUPILUMAB [Suspect]
     Active Substance: DUPILUMAB
     Dosage: UNK
     Dates: start: 20220225
  3. PANTOPRAZOLE [Concomitant]
     Active Substance: PANTOPRAZOLE
  4. DIGOXIN [Concomitant]
     Active Substance: DIGOXIN
  5. RIVAROXABAN [Concomitant]
     Active Substance: RIVAROXABAN
  6. BISOPROLOL [Concomitant]
     Active Substance: BISOPROLOL
  7. LEVOTHYROXINE [Concomitant]
     Active Substance: LEVOTHYROXINE
  8. PREDNISONE [Concomitant]
     Active Substance: PREDNISONE
  9. REPAGLINIDE [Concomitant]
     Active Substance: REPAGLINIDE
  10. FUROSEMIDE [Concomitant]
     Active Substance: FUROSEMIDE

REACTIONS (1)
  - Colon cancer [Recovering/Resolving]
